FAERS Safety Report 5495763-0 (Version None)
Quarter: 2007Q4

REPORT INFORMATION
  Report Type: 
  Country: None (occurrence: None)
  Receive Date: 20071025
  Receipt Date: 20070223
  Transmission Date: 20080405
  Serious: No
  Sender: FDA-Public Use
  Company Number: A0623892A

PATIENT
  Age: 84 Year
  Sex: Female

DRUGS (11)
  1. ADVAIR DISKUS 100/50 [Suspect]
     Indication: BRONCHITIS
     Dosage: 1PUFF TWICE PER DAY
     Route: 055
  2. ZOCOR [Concomitant]
  3. ZANTAC [Concomitant]
  4. BUMEX [Concomitant]
  5. COENZYME Q10 [Concomitant]
  6. VITAMINS [Concomitant]
  7. GLUCOSAMINE [Concomitant]
  8. QUININE SULFATE [Concomitant]
  9. PRANDIN [Concomitant]
  10. SYNTHROID [Concomitant]
  11. SPIRONOLACTONE [Concomitant]

REACTIONS (6)
  - ARTIFICIAL CROWN PROCEDURE [None]
  - DENTAL CARIES [None]
  - DRY MOUTH [None]
  - ENDODONTIC PROCEDURE [None]
  - TOOTH DISORDER [None]
  - TOOTH EXTRACTION [None]
